FAERS Safety Report 5278622-8 (Version None)
Quarter: 2007Q1

REPORT INFORMATION
  Report Type: 
  Country: None (occurrence: None)
  Receive Date: 20070322
  Receipt Date: 20070314
  Transmission Date: 20070707
  Serious: Yes (Hospitalization)
  Sender: FDA-Public Use
  Company Number: 2007-01205

PATIENT
  Age: 82 Year
  Sex: Female

DRUGS (2)
  1. FLUVOXAMINE (WATSON LABORATORIES)(FLUVOXAMINE MALEATE) TABLET [Suspect]
     Indication: MAJOR DEPRESSION
     Dosage: SEE IMAGE
     Route: 048
  2. ZOLPIDEM TARTRATE [Suspect]
     Indication: INSOMNIA
     Dosage: 10 MG, QHS, ORAL
     Route: 048

REACTIONS (3)
  - AMNESIA [None]
  - DRUG INTERACTION [None]
  - HALLUCINATION, VISUAL [None]
